FAERS Safety Report 9484685 (Version 1)
Quarter: 2013Q3

REPORT INFORMATION
  Report Type: Spontaneous
  Country: US (occurrence: US)
  Receive Date: 20130828
  Receipt Date: 20130828
  Transmission Date: 20140515
  Serious: No
  Sender: FDA-Public Use
  Company Number: US-BAYER-2013-104165

PATIENT
  Age: 10 Year
  Sex: Female
  Weight: 35.37 kg

DRUGS (1)
  1. ALEVE CAPLET [Suspect]
     Dosage: 1 DF, UNK
     Dates: start: 20130822

REACTIONS (1)
  - Off label use [None]
